FAERS Safety Report 17663521 (Version 1)
Quarter: 2020Q2

REPORT INFORMATION
  Report Type: Spontaneous
  Country: CN (occurrence: CN)
  Receive Date: 20200413
  Receipt Date: 20200413
  Transmission Date: 20200713
  Serious: Yes (Other)
  Sender: FDA-Public Use
  Company Number: CN-ABBVIE-20K-035-3357008-00

PATIENT
  Age: 32 Year
  Sex: Female
  Weight: 52 kg

DRUGS (2)
  1. ALUVIA 200/50 [Suspect]
     Active Substance: LOPINAVIR\RITONAVIR
     Indication: CORONAVIRUS INFECTION
  2. ALUVIA 200/50 [Suspect]
     Active Substance: LOPINAVIR\RITONAVIR
     Indication: PNEUMONIA VIRAL
     Route: 048
     Dates: start: 20200202, end: 20200211

REACTIONS (5)
  - Diarrhoea [Recovering/Resolving]
  - Off label use [Recovering/Resolving]
  - Therapeutic response unexpected [Unknown]
  - Abdominal discomfort [Recovering/Resolving]
  - Nausea [Recovering/Resolving]

NARRATIVE: CASE EVENT DATE: 20200202
